FAERS Safety Report 5456652-0 (Version None)
Quarter: 2007Q3

REPORT INFORMATION
  Report Type: 
  Country: None (occurrence: None)
  Receive Date: 20070917
  Receipt Date: 20070917
  Transmission Date: 20080115
  Serious: Yes (Hospitalization)
  Sender: FDA-Public Use
  Company Number: None

PATIENT
  Sex: Male
  Weight: 78.8 kg

DRUGS (1)
  1. CYTARABINE [Suspect]
     Dosage: 4000 MG
     Dates: end: 20070410

REACTIONS (3)
  - ACUTE MYELOID LEUKAEMIA RECURRENT [None]
  - ARTHRITIS BACTERIAL [None]
  - FEBRILE NEUTROPENIA [None]
